FAERS Safety Report 22124822 (Version 3)
Quarter: 2023Q2

REPORT INFORMATION
  Report Type: Report from Study
  Country: CO (occurrence: CO)
  Receive Date: 20230322
  Receipt Date: 20230415
  Transmission Date: 20230721
  Serious: Yes (Other)
  Sender: FDA-Public Use
  Company Number: CO-002147023-NVSC2023CO047718

PATIENT
  Sex: Female

DRUGS (2)
  1. BROLUCIZUMAB [Suspect]
     Active Substance: BROLUCIZUMAB
     Indication: Macular degeneration
     Dosage: UNK UNK, QMO
     Route: 047
  2. BROLUCIZUMAB [Suspect]
     Active Substance: BROLUCIZUMAB
     Dosage: 6 MG, Q2MO (VIA EYE)
     Route: 047
     Dates: start: 202303

REACTIONS (5)
  - Retinal exudates [Unknown]
  - Ocular hyperaemia [Unknown]
  - Asthenopia [Unknown]
  - Photopsia [Unknown]
  - Visual impairment [Unknown]
